FAERS Safety Report 5403605-4 (Version None)
Quarter: 2007Q3

REPORT INFORMATION
  Report Type: 
  Country: None (occurrence: None)
  Receive Date: 20070802
  Receipt Date: 20070725
  Transmission Date: 20080115
  Serious: Yes (Other)
  Sender: FDA-Public Use
  Company Number: PHEH2007US10363

PATIENT
  Sex: Female

DRUGS (2)
  1. EXFORGE [Suspect]
     Indication: HYPERTENSION
     Dosage: 5 MG AMLODIPINE/320MG VALSARTAN
     Route: 048
     Dates: end: 20070711
  2. EXFORGE [Suspect]
     Dosage: 10MG AMLODIPINE/320MG VALSARTAN
     Dates: start: 20070712

REACTIONS (8)
  - CHOKING [None]
  - DYSPHAGIA [None]
  - ERUCTATION [None]
  - FLUID RETENTION [None]
  - HEADACHE [None]
  - NASAL DISORDER [None]
  - OEDEMA PERIPHERAL [None]
  - WEIGHT INCREASED [None]
